FAERS Safety Report 18476993 (Version 1)
Quarter: 2020Q4

REPORT INFORMATION
  Report Type: Spontaneous
  Country: IT (occurrence: IT)
  Receive Date: 20201107
  Receipt Date: 20201107
  Transmission Date: 20210114
  Serious: Yes (Hospitalization)
  Sender: FDA-Public Use
  Company Number: NVSC2020IT288094

PATIENT
  Age: 35 Year
  Sex: Male

DRUGS (3)
  1. NOZINAN [Suspect]
     Active Substance: LEVOMEPROMAZINE
     Indication: DRUG ABUSE
     Dosage: 50 MG, ONCE/SINGLE (TOTAL)
     Route: 048
     Dates: start: 20200721, end: 20200721
  2. ENTUMIN [Suspect]
     Active Substance: CLOTHIAPINE
     Indication: DRUG ABUSE
     Dosage: 5 ML, ONCE/SINGLE (TOTAL)
     Route: 048
     Dates: start: 20200721, end: 20200721
  3. OLANZAPINE. [Suspect]
     Active Substance: OLANZAPINE
     Indication: DRUG ABUSE
     Dosage: 20 MG, ONCE/SINGLE (TOTAL)
     Route: 048
     Dates: start: 20200721, end: 20200721

REACTIONS (4)
  - Hyperhidrosis [Not Recovered/Not Resolved]
  - Substance abuse [Not Recovered/Not Resolved]
  - Loss of consciousness [Not Recovered/Not Resolved]
  - Pallor [Not Recovered/Not Resolved]

NARRATIVE: CASE EVENT DATE: 20200721
